FAERS Safety Report 18423817 (Version 3)
Quarter: 2020Q4

REPORT INFORMATION
  Report Type: Spontaneous
  Country: US (occurrence: US)
  Receive Date: 20201024
  Receipt Date: 20201126
  Transmission Date: 20210114
  Serious: Yes (Death, Hospitalization, Other)
  Sender: FDA-Public Use
  Company Number: US-UNITED THERAPEUTICS-UNT-2020-014895

PATIENT
  Sex: Male

DRUGS (4)
  1. REMODULIN [Suspect]
     Active Substance: TREPROSTINIL
     Dosage: 0.02120 ?G/KG, CONTINUING
     Route: 041
     Dates: start: 2020, end: 2020
  2. REMODULIN [Suspect]
     Active Substance: TREPROSTINIL
     Dosage: 0.0247 ?G/KG , CONTINUING
     Route: 058
     Dates: start: 2020, end: 2020
  3. REMODULIN [Suspect]
     Active Substance: TREPROSTINIL
     Indication: PULMONARY ARTERIAL HYPERTENSION
     Dosage: UNK, CONTINUING
     Route: 041
     Dates: start: 20200810
  4. REMODULIN [Suspect]
     Active Substance: TREPROSTINIL
     Indication: PULMONARY ARTERIAL HYPERTENSION
     Dosage: UNK, CONTINUING
     Route: 058
     Dates: start: 20200820

REACTIONS (8)
  - Respiratory failure [Fatal]
  - Acute kidney injury [Fatal]
  - Diarrhoea [Unknown]
  - Nausea [Unknown]
  - Oedema [Recovering/Resolving]
  - Headache [Unknown]
  - Dehydration [Unknown]
  - Vomiting [Unknown]

NARRATIVE: CASE EVENT DATE: 2020
